FAERS Safety Report 21436752 (Version 6)
Quarter: 2022Q4

REPORT INFORMATION
  Report Type: Spontaneous
  Country: US (occurrence: US)
  Receive Date: 20221010
  Receipt Date: 20221216
  Transmission Date: 20230113
  Serious: Yes (Other)
  Sender: FDA-Public Use
  Company Number: US-PFIZER INC-PV202200060283

PATIENT
  Age: 76 Year
  Sex: Male

DRUGS (5)
  1. CIBINQO [Suspect]
     Active Substance: ABROCITINIB
     Indication: Ulcer haemorrhage
     Dosage: 100 MG, 1X/DAY
  2. CIBINQO [Suspect]
     Active Substance: ABROCITINIB
     Dosage: 100 MG, 2X/DAY
     Route: 048
  3. CIBINQO [Suspect]
     Active Substance: ABROCITINIB
     Dosage: 200 MG, 1X/DAY (PO QD, 30-DAY SUPPLY)
     Route: 048
  4. CIBINQO [Suspect]
     Active Substance: ABROCITINIB
     Dosage: 50 MG, 2X/DAY (TAKE 1 TAB (50MG) BID (12 HOURS APART))
  5. CIBINQO [Suspect]
     Active Substance: ABROCITINIB
     Dosage: 50 MG, DAILY
     Route: 048

REACTIONS (5)
  - Therapeutic product effect incomplete [Unknown]
  - Haemorrhage [Unknown]
  - Off label use [Unknown]
  - Pustule [Unknown]
  - Drug effective for unapproved indication [Unknown]
